FAERS Safety Report 26213859 (Version 1)
Quarter: 2025Q4

REPORT INFORMATION
  Report Type: Spontaneous
  Country: US (occurrence: US)
  Receive Date: 20251230
  Receipt Date: 20251230
  Transmission Date: 20260118
  Serious: Yes (Other)
  Sender: PURDUE
  Company Number: US-PURDUE-USA-2025-0323398

PATIENT
  Age: 75 Year
  Sex: Male

DRUGS (2)
  1. THEOPHYLLINE ANHYDROUS [Suspect]
     Active Substance: THEOPHYLLINE ANHYDROUS
     Indication: Asthma
     Dosage: UNK
     Route: 065
  2. TEZEPELUMAB [Suspect]
     Active Substance: TEZEPELUMAB
     Indication: Asthma
     Dosage: UNK
     Route: 065

REACTIONS (4)
  - Amyotrophic lateral sclerosis [Unknown]
  - Chronic respiratory failure [Unknown]
  - Parainfluenzae virus infection [Unknown]
  - Drug ineffective [Unknown]
